FAERS Safety Report 23886689 (Version 2)
Quarter: 2024Q3

REPORT INFORMATION
  Report Type: Spontaneous
  Country: CN (occurrence: CN)
  Receive Date: 20240522
  Receipt Date: 20240909
  Transmission Date: 20241017
  Serious: No
  Sender: ABBVIE
  Company Number: CN-ABBVIE-5765811

PATIENT

DRUGS (1)
  1. PRED FORTE [Suspect]
     Active Substance: PREDNISOLONE ACETATE
     Indication: Product used for unknown indication
     Dosage: 5 ML?DOSAGE FORM: BOTTLE, MULTIDOSE
     Route: 047

REACTIONS (2)
  - Foreign body sensation in eyes [Unknown]
  - Eye discharge [Unknown]
